FAERS Safety Report 25362445 (Version 1)
Quarter: 2025Q2

REPORT INFORMATION
  Report Type: Report from Study
  Country: FR (occurrence: FR)
  Receive Date: 20250527
  Receipt Date: 20250527
  Transmission Date: 20250717
  Serious: Yes (Other)
  Sender: MYLAN
  Company Number: FR-MYLANLABS-2025M1042549

PATIENT

DRUGS (18)
  1. EMTRICITABINE\TENOFOVIR DISOPROXIL [Suspect]
     Active Substance: EMTRICITABINE\TENOFOVIR DISOPROXIL
     Indication: HIV-2 infection
     Dosage: UNK, QD
  2. EMTRICITABINE\TENOFOVIR DISOPROXIL [Suspect]
     Active Substance: EMTRICITABINE\TENOFOVIR DISOPROXIL
     Indication: Multiple-drug resistance
  3. ATAZANAVIR [Suspect]
     Active Substance: ATAZANAVIR
     Indication: HIV-2 infection
     Dosage: 150 MILLIGRAM, QD
  4. ATAZANAVIR [Suspect]
     Active Substance: ATAZANAVIR
     Indication: Multiple-drug resistance
  5. DARUNAVIR\RITONAVIR [Suspect]
     Active Substance: DARUNAVIR\RITONAVIR
     Indication: HIV-2 infection
  6. DARUNAVIR\RITONAVIR [Suspect]
     Active Substance: DARUNAVIR\RITONAVIR
     Indication: Multiple-drug resistance
     Dosage: UNK, BID, 1000/100MG TWICE DAILY
  7. MARAVIROC [Suspect]
     Active Substance: MARAVIROC
     Indication: HIV-2 infection
     Dosage: 150 MILLIGRAM, BID
  8. MARAVIROC [Suspect]
     Active Substance: MARAVIROC
     Indication: Multiple-drug resistance
  9. FOSCARNET [Suspect]
     Active Substance: FOSCARNET
     Indication: HIV-2 infection
  10. FOSCARNET [Suspect]
     Active Substance: FOSCARNET
     Indication: Multiple-drug resistance
  11. BICTEGRAVIR\EMTRICITABINE\TENOFOVIR ALAFENAMIDE [Suspect]
     Active Substance: BICTEGRAVIR\EMTRICITABINE\TENOFOVIR ALAFENAMIDE
     Indication: HIV-2 infection
     Dosage: UNK, QD
  12. BICTEGRAVIR\EMTRICITABINE\TENOFOVIR ALAFENAMIDE [Suspect]
     Active Substance: BICTEGRAVIR\EMTRICITABINE\TENOFOVIR ALAFENAMIDE
     Indication: Multiple-drug resistance
  13. DOLUTEGRAVIR [Suspect]
     Active Substance: DOLUTEGRAVIR
     Indication: HIV-2 infection
     Dosage: 50 MILLIGRAM, QD
  14. DOLUTEGRAVIR [Suspect]
     Active Substance: DOLUTEGRAVIR
     Indication: Multiple-drug resistance
  15. ZIDOVUDINE [Suspect]
     Active Substance: ZIDOVUDINE
     Indication: HIV-2 infection
     Dosage: 250 MILLIGRAM, BID
  16. ZIDOVUDINE [Suspect]
     Active Substance: ZIDOVUDINE
     Indication: Multiple-drug resistance
  17. IBALIZUMAB [Suspect]
     Active Substance: IBALIZUMAB
     Indication: HIV-2 infection
  18. IBALIZUMAB [Suspect]
     Active Substance: IBALIZUMAB
     Indication: Multiple-drug resistance
     Dosage: 800 MILLIGRAM, BIWEEKLY

REACTIONS (2)
  - Drug ineffective [Unknown]
  - Pathogen resistance [Unknown]
